FAERS Safety Report 5841689-X (Version None)
Quarter: 2008Q3

REPORT INFORMATION
  Report Type: 
  Country: None (occurrence: None)
  Receive Date: 20080811
  Receipt Date: 20080811
  Transmission Date: 20090109
  Serious: Yes (Life-Threatening, Hospitalization)
  Sender: FDA-Public Use
  Company Number: None

PATIENT
  Age: 13 Year
  Sex: Male
  Weight: 85.2762 kg

DRUGS (3)
  1. ABILIFY [Suspect]
     Indication: ASPERGER'S DISORDER
     Dosage: 25 MG DAILY PO, 3 YEARS
     Route: 048
     Dates: start: 20050901, end: 20080804
  2. LOBUTRIN [Concomitant]
  3. VYVANSE [Concomitant]

REACTIONS (2)
  - BODY TEMPERATURE INCREASED [None]
  - HEAT STROKE [None]
